FAERS Safety Report 19658314 (Version 1)
Quarter: 2021Q3

REPORT INFORMATION
  Report Type: Report from Study
  Country: US (occurrence: US)
  Receive Date: 20210804
  Receipt Date: 20210804
  Transmission Date: 20211014
  Serious: Yes (Death)
  Sender: FDA-Public Use
  Company Number: US-TAIHO ONCOLOGY  INC-EU-2021-02449

PATIENT
  Age: 71 Year
  Sex: Male
  Weight: 88.78 kg

DRUGS (12)
  1. LONSURF [Suspect]
     Active Substance: TIPIRACIL HYDROCHLORIDE\TRIFLURIDINE
     Indication: PRODUCT USED FOR UNKNOWN INDICATION
     Dosage: CYCLE UNKNOWN
     Route: 048
  2. LISINOPRIL. [Concomitant]
     Active Substance: LISINOPRIL
  3. CARAFATE [Concomitant]
     Active Substance: SUCRALFATE
  4. FLOMAX [Concomitant]
     Active Substance: TAMSULOSIN HYDROCHLORIDE
  5. MAGIC MOUTHWASH [Concomitant]
     Active Substance: DIPHENHYDRAMINE HYDROCHLORIDE\LIDOCAINE HYDROCHLORIDE\NYSTATIN
  6. LIPITOR [Concomitant]
     Active Substance: ATORVASTATIN CALCIUM
  7. NITROSTAT [Concomitant]
     Active Substance: NITROGLYCERIN
  8. GABAPENTIN. [Concomitant]
     Active Substance: GABAPENTIN
  9. TOUJEO MAX SOLARSTAR [Concomitant]
  10. ATIVAN [Concomitant]
     Active Substance: LORAZEPAM
  11. METFORMIN [Concomitant]
     Active Substance: METFORMIN HYDROCHLORIDE
  12. CORGARD [Concomitant]
     Active Substance: NADOLOL

REACTIONS (1)
  - Death [Fatal]
